FAERS Safety Report 9294397 (Version 2)
Quarter: 2013Q3

REPORT INFORMATION
  Report Type: Spontaneous
  Country: US (occurrence: US)
  Receive Date: 20130517
  Receipt Date: 20130816
  Transmission Date: 20140515
  Serious: No
  Sender: FDA-Public Use
  Company Number: US-BIOGENIDEC-2013BI043863

PATIENT
  Age: 53 Year
  Sex: Female

DRUGS (1)
  1. TYSABRI [Suspect]
     Indication: MULTIPLE SCLEROSIS
     Route: 042
     Dates: start: 20120529

REACTIONS (22)
  - Migraine [Not Recovered/Not Resolved]
  - Menstruation irregular [Recovered/Resolved]
  - Menorrhagia [Not Recovered/Not Resolved]
  - Stress [Not Recovered/Not Resolved]
  - Pain [Not Recovered/Not Resolved]
  - Hyperacusis [Not Recovered/Not Resolved]
  - Muscle spasms [Recovered/Resolved]
  - Decreased appetite [Not Recovered/Not Resolved]
  - Depression [Not Recovered/Not Resolved]
  - Temperature intolerance [Unknown]
  - Tooth fracture [Recovered/Resolved]
  - Drug eruption [Recovered/Resolved]
  - Hemiparesis [Not Recovered/Not Resolved]
  - Cognitive disorder [Not Recovered/Not Resolved]
  - Head injury [Recovered/Resolved]
  - Concussion [Unknown]
  - Headache [Recovered/Resolved]
  - Pruritus generalised [Not Recovered/Not Resolved]
  - Multiple sclerosis [Unknown]
  - Fatigue [Not Recovered/Not Resolved]
  - Gastrointestinal viral infection [Recovered/Resolved]
  - Nausea [Recovered/Resolved]
